FAERS Safety Report 23464227 (Version 2)
Quarter: 2024Q1

REPORT INFORMATION
  Report Type: Report from Study
  Country: HU (occurrence: HU)
  Receive Date: 20240201
  Receipt Date: 20240214
  Transmission Date: 20240409
  Serious: Yes (Death, Other)
  Sender: FDA-Public Use
  Company Number: HU-ABBVIE-5616238

PATIENT
  Sex: Male

DRUGS (12)
  1. CARBIDOPA\LEVODOPA [Suspect]
     Active Substance: CARBIDOPA\LEVODOPA
     Indication: Parkinson^s disease
     Dosage: MORNING DOSE: 7.5 ML; CONTINUOUS DOSE: 4.2 ML/HOUR; EXTRA DOSE: 1.5 ML
     Route: 050
     Dates: start: 20220608
  2. CARBIDOPA\LEVODOPA [Suspect]
     Active Substance: CARBIDOPA\LEVODOPA
  3. ESOMEPRAZOLE [Concomitant]
     Active Substance: ESOMEPRAZOLE
     Indication: Prophylaxis
     Dosage: FORM STRENGTH: 40 MILLIGRAM; FREQUENCY TEXT: 1 TABLET AT NOON
     Route: 048
  4. MIRVEDOL [Concomitant]
     Indication: Dementia
     Dosage: FORM STRENGTH: 20 MILLIGRAMS?FREQUENCY TEXT: 1 TABLET IN THE EVENING
  5. ALFUZOSIN [Concomitant]
     Active Substance: ALFUZOSIN
     Indication: Prostatic disorder
     Dosage: FORM STRENGTH: 10 MILLIGRAM?FREQUENCY TEXT: 1 TABLET IN THE EVENING
     Route: 048
  6. NEUPRO [Concomitant]
     Active Substance: ROTIGOTINE
     Indication: Parkinson^s disease
     Dosage: FORM STRENGTH: 6 MILLIGRAMS?FREQUENCY TEXT: 1 PATCH IN THE MORNING
     Route: 062
     Dates: start: 20230318, end: 20240110
  7. CLOPIDOGREL [Concomitant]
     Active Substance: CLOPIDOGREL BISULFATE
     Indication: Prophylaxis
     Dosage: 75 MILLIGRAM; FREQUENCY TEXT: 1 TABLET IN THE MORNING
     Route: 048
  8. STALEVO [Concomitant]
     Active Substance: CARBIDOPA\ENTACAPONE\LEVODOPA
     Indication: Parkinson^s disease
     Dosage: 175 MG LEVODOPA, 43.75 MG CARBIDOPA, 200 MG ENTACAPONE / TABLET; FREQUENCY TEXT: 1 TABLET AT 22:00
  9. LEVIL [Concomitant]
     Indication: Epilepsy
     Dosage: FORM STRENGTH: 500 MILLIGRAMS
     Dates: start: 20240110
  10. PERINDOPRIL ERBUMINE [Concomitant]
     Active Substance: PERINDOPRIL ERBUMINE
     Indication: Hypertension
     Dosage: FORM STRENGTH: 4 MILLIGRAMS?FREQUENCY TEXT: HALF TABLET DAILY
  11. ROSUVASTATIN CALCIUM [Concomitant]
     Active Substance: ROSUVASTATIN CALCIUM
     Indication: Blood cholesterol increased
     Dosage: FORM STRENGTH: 20 MILLIGRAMS?FREQUENCY TEXT: 1 TABLET IN THE EVENING
  12. MAGNESIUM ASPARTATE\POTASSIUM ASPARTATE [Concomitant]
     Active Substance: MAGNESIUM ASPARTATE\POTASSIUM ASPARTATE
     Indication: Prophylaxis
     Dosage: 158 MG POTASSIUM ASPARTATE, 140 MG MAGNESIUM ASPARTATE?FREQUENCY TEXT: 1 TABLET IN THE MORNING
     Route: 048

REACTIONS (2)
  - Death [Fatal]
  - Pneumonia [Unknown]

NARRATIVE: CASE EVENT DATE: 20240124
